FAERS Safety Report 25524738 (Version 1)
Quarter: 2025Q3

REPORT INFORMATION
  Report Type: Spontaneous
  Country: US (occurrence: US)
  Receive Date: 20250707
  Receipt Date: 20250707
  Transmission Date: 20251020
  Serious: No
  Sender: CSL BEHRING
  Company Number: US-BEH-2025211022

PATIENT
  Age: 60 Year
  Sex: Male

DRUGS (5)
  1. IDELVION [Suspect]
     Active Substance: COAGULATION FACTOR IX RECOMBINANT HUMAN
     Indication: Factor IX deficiency
     Dosage: 3000 IU, QW (STRENGTH: 1000)
     Route: 042
     Dates: start: 20230131
  2. IDELVION [Suspect]
     Active Substance: COAGULATION FACTOR IX RECOMBINANT HUMAN
     Indication: Factor IX deficiency
     Dosage: 3000 IU, QW (STRENGTH: 1000)
     Route: 042
     Dates: start: 20230131
  3. IDELVION [Suspect]
     Active Substance: COAGULATION FACTOR IX RECOMBINANT HUMAN
     Dosage: 3000 IU, QW (STRENGTH: 2000)
     Route: 042
     Dates: start: 20230131
  4. IDELVION [Suspect]
     Active Substance: COAGULATION FACTOR IX RECOMBINANT HUMAN
     Dosage: 3000 IU, QW (STRENGTH: 2000)
     Route: 042
     Dates: start: 20230131
  5. HEPARIN [Concomitant]
     Active Substance: HEPARIN SODIUM

REACTIONS (2)
  - Feeling abnormal [Not Recovered/Not Resolved]
  - Product dose omission issue [Unknown]

NARRATIVE: CASE EVENT DATE: 20250601
